FAERS Safety Report 7072121-9 (Version None)
Quarter: 2010Q4

REPORT INFORMATION
  Report Type: 
  Country: None (occurrence: None)
  Receive Date: 20101029
  Receipt Date: 20100204
  Transmission Date: 20110411
  Serious: No
  Sender: FDA-Public Use
  Company Number: A0833177A

PATIENT
  Age: 80 Year
  Sex: Female

DRUGS (8)
  1. ADVAIR DISKUS 100/50 [Suspect]
     Indication: PRODUCT USED FOR UNKNOWN INDICATION
     Route: 055
     Dates: start: 20090801
  2. ALBUTEROL [Concomitant]
  3. LISINOPRIL [Concomitant]
  4. HCT [Concomitant]
  5. METOPROLOL [Concomitant]
  6. AMLODIPINE [Concomitant]
  7. SYNTHROID [Concomitant]
  8. KLOR-CON [Concomitant]

REACTIONS (4)
  - DRUG INEFFECTIVE [None]
  - DYSPNOEA [None]
  - INHALATION THERAPY [None]
  - PRODUCT QUALITY ISSUE [None]
